FAERS Safety Report 4822355-6 (Version None)
Quarter: 2005Q4

REPORT INFORMATION
  Report Type: 
  Country: None (occurrence: None)
  Receive Date: 20051104
  Receipt Date: 20051024
  Transmission Date: 20060501
  Serious: Yes (Death)
  Sender: FDA-Public Use
  Company Number: B0288929A

PATIENT
  Age: 10 Month
  Sex: Female

DRUGS (2)
  1. FLOLAN [Suspect]
     Dosage: INTRAVENOUS
     Route: 042
     Dates: start: 20021011, end: 20021013
  2. SILDENEFIL CITRATE [Concomitant]

REACTIONS (18)
  - ATELECTASIS [None]
  - BRADYCARDIA [None]
  - CARDIAC ARREST [None]
  - CRYING [None]
  - HEPATIC CONGESTION [None]
  - HYPERTENSIVE CRISIS [None]
  - HYPOVENTILATION [None]
  - HYPOXIA [None]
  - POOR PERIPHERAL CIRCULATION [None]
  - PULMONARY CONGESTION [None]
  - PULMONARY HAEMORRHAGE [None]
  - PULMONARY HYPERTENSION [None]
  - REBOUND EFFECT [None]
  - RESPIRATORY ARREST [None]
  - STRESS [None]
  - SUDDEN DEATH [None]
  - TACHYPNOEA [None]
  - WHEEZING [None]
